FAERS Safety Report 5194688-8 (Version None)
Quarter: 2006Q4

REPORT INFORMATION
  Report Type: 
  Country: None (occurrence: None)
  Receive Date: 20061222
  Receipt Date: 20061222
  Transmission Date: 20070319
  Serious: Yes (Hospitalization)
  Sender: FDA-Public Use
  Company Number: None

PATIENT
  Sex: Male
  Weight: 64.2 kg

DRUGS (2)
  1. CEFEPIME [Suspect]
     Dosage: 2 GRAMS Q6H IV
     Route: 042
  2. MOXIFLOXACIN [Suspect]
     Dosage: 400 MG ONCE IV
     Route: 042

REACTIONS (3)
  - CONDITION AGGRAVATED [None]
  - SYSTEMIC LUPUS ERYTHEMATOSUS [None]
  - TOXIC EPIDERMAL NECROLYSIS [None]
